FAERS Safety Report 16091319 (Version 1)
Quarter: 2019Q1

REPORT INFORMATION
  Report Type: Report from Study
  Country: US (occurrence: US)
  Receive Date: 20190319
  Receipt Date: 20190319
  Transmission Date: 20190418
  Serious: Yes (Hospitalization)
  Sender: FDA-Public Use
  Company Number: US-JNJFOC-20190322854

PATIENT
  Age: 69 Year
  Sex: Male

DRUGS (13)
  1. TOCOPHEROL [Concomitant]
     Active Substance: TOCOPHEROL
  2. DILTIAZEM HCL [Concomitant]
     Active Substance: DILTIAZEM HYDROCHLORIDE
  3. IMBRUVICA [Suspect]
     Active Substance: IBRUTINIB
     Indication: CHRONIC LYMPHOCYTIC LEUKAEMIA
     Route: 048
     Dates: start: 20190212
  4. TOUJEO [Concomitant]
     Active Substance: INSULIN GLARGINE
  5. METOPROLOL TARTRATE. [Concomitant]
     Active Substance: METOPROLOL TARTRATE
  6. ADENOSINE. [Concomitant]
     Active Substance: ADENOSINE
  7. ALLOPURINOL. [Concomitant]
     Active Substance: ALLOPURINOL
  8. PLAVIX [Concomitant]
     Active Substance: CLOPIDOGREL BISULFATE
  9. NOVOLOG [Concomitant]
     Active Substance: INSULIN ASPART
  10. ACYCLOVIR. [Concomitant]
     Active Substance: ACYCLOVIR
  11. ARICEPT [Concomitant]
     Active Substance: DONEPEZIL HYDROCHLORIDE
  12. PRAVASTATIN. [Concomitant]
     Active Substance: PRAVASTATIN
  13. MULTIVITAMINS [Concomitant]
     Active Substance: VITAMINS

REACTIONS (2)
  - Post procedural haematoma [Unknown]
  - Neck mass [Unknown]

NARRATIVE: CASE EVENT DATE: 201902
